FAERS Safety Report 4457669-5 (Version None)
Quarter: 2004Q3

REPORT INFORMATION
  Report Type: 
  Country: None (occurrence: None)
  Receive Date: 20040922
  Receipt Date: 20040909
  Transmission Date: 20050211
  Serious: Yes (Other)
  Sender: FDA-Public Use
  Company Number: 209040

PATIENT

DRUGS (4)
  1. MABTHERA (RITUXIMAB) CONC FOR SOLUTION FOR INFUSION [Suspect]
  2. CYCLOPHOSPHAMIDE [Suspect]
  3. DOXORUBICIN (DOXORUBICIN HYDROCHLORIDE, DOXORUBICIN) [Suspect]
  4. VINCRISTINE [Suspect]

REACTIONS (1)
  - PNEUMOCYSTIS CARINII PNEUMONIA [None]
